FAERS Safety Report 25118519 (Version 2)
Quarter: 2025Q2

REPORT INFORMATION
  Report Type: Spontaneous
  Country: GB (occurrence: GB)
  Receive Date: 20250325
  Receipt Date: 20250404
  Transmission Date: 20250717
  Serious: Yes (Life-Threatening, Hospitalization)
  Sender: TEVA
  Company Number: GB-TEVA-VS-3312233

PATIENT
  Age: 53 Year
  Sex: Female

DRUGS (2)
  1. PROPYLTHIOURACIL [Suspect]
     Active Substance: PROPYLTHIOURACIL
     Indication: Graves^ disease
     Route: 065
  2. CARBIMAZOLE [Suspect]
     Active Substance: CARBIMAZOLE
     Indication: Graves^ disease
     Route: 065

REACTIONS (7)
  - Myalgia [Unknown]
  - Fatigue [Recovering/Resolving]
  - Neutropenic sepsis [Recovering/Resolving]
  - Agranulocytosis [Recovered/Resolved]
  - Odynophagia [Recovering/Resolving]
  - Oropharyngeal pain [Recovering/Resolving]
  - Febrile neutropenia [Recovered/Resolved]
